FAERS Safety Report 13939699 (Version 1)
Quarter: 2017Q3

REPORT INFORMATION
  Report Type: Spontaneous
  Country: US (occurrence: US)
  Receive Date: 20170906
  Receipt Date: 20170906
  Transmission Date: 20171127
  Serious: No
  Sender: FDA-Public Use
  Company Number: US-009507513-1709USA001970

PATIENT

DRUGS (1)
  1. ASMANEX [Suspect]
     Active Substance: MOMETASONE FUROATE
     Dosage: INHALER 220MCG, 14 DOSE UNIT, 1 INHALATION, ONCE DAILY
     Route: 055

REACTIONS (3)
  - Product container issue [Unknown]
  - No adverse event [Unknown]
  - Drug dose omission [Unknown]
